FAERS Safety Report 19656692 (Version 1)
Quarter: 2021Q3

REPORT INFORMATION
  Report Type: Spontaneous
  Country: CN (occurrence: CN)
  Receive Date: 20210804
  Receipt Date: 20210804
  Transmission Date: 20211014
  Serious: Yes (Other)
  Sender: FDA-Public Use
  Company Number: CN-TERSERA THERAPEUTICS LLC-2021TRS003637

PATIENT

DRUGS (6)
  1. ZOLADEX [Suspect]
     Active Substance: GOSERELIN ACETATE
     Indication: PROSTATE CANCER
     Dosage: 3.6 MG/TIME, 1 TIME/MONTH
     Route: 058
  2. ZOLEDRONIC ACID [Concomitant]
     Active Substance: ZOLEDRONIC ACID
     Indication: PROSTATE CANCER
     Dosage: 4 MG/TIME, 1 TIME/MONTH
     Route: 065
     Dates: start: 201402
  3. DOCETAXEL. [Concomitant]
     Active Substance: DOCETAXEL
     Indication: PRODUCT USED FOR UNKNOWN INDICATION
     Dosage: UNK
     Route: 065
  4. PREDNISOLONE. [Concomitant]
     Active Substance: PREDNISOLONE
     Indication: PRODUCT USED FOR UNKNOWN INDICATION
     Dosage: UNK
     Route: 065
  5. CASODEX [Suspect]
     Active Substance: BICALUTAMIDE
     Indication: PROSTATE CANCER
     Dosage: 50 MG/TIME, 1 TIME/D, FOR 8 MONTHS
     Route: 048
     Dates: start: 201612, end: 201707
  6. ABIRATERONE ACETATE;PREDNISOLONE [Concomitant]
     Indication: PROSTATE CANCER
     Dosage: FOR 17 MONTHS
     Route: 065

REACTIONS (1)
  - Malignant neoplasm progression [Unknown]
